FAERS Safety Report 25772714 (Version 1)
Quarter: 2025Q3

REPORT INFORMATION
  Report Type: Report from Study
  Country: AE (occurrence: AE)
  Receive Date: 20250908
  Receipt Date: 20250908
  Transmission Date: 20251020
  Serious: Yes (Hospitalization)
  Sender: ALEXION PHARMACEUTICALS
  Company Number: AE-AstraZeneca-CH-00945412A

PATIENT
  Sex: Female

DRUGS (1)
  1. ANIFROLUMAB [Suspect]
     Active Substance: ANIFROLUMAB
     Indication: Systemic lupus erythematosus
     Dosage: 300 MILLIGRAM, Q4W
     Dates: start: 202412

REACTIONS (7)
  - Intervertebral disc protrusion [Unknown]
  - Head discomfort [Unknown]
  - Fatigue [Unknown]
  - Gastric ulcer [Unknown]
  - Deafness [Unknown]
  - Memory impairment [Unknown]
  - Balance disorder [Unknown]

NARRATIVE: CASE EVENT DATE: 20250901
